FAERS Safety Report 25015732 (Version 1)
Quarter: 2025Q1

REPORT INFORMATION
  Report Type: Report from Study
  Country: US (occurrence: US)
  Receive Date: 20250227
  Receipt Date: 20250227
  Transmission Date: 20250408
  Serious: Yes (Other)
  Sender: UCB
  Company Number: US-UCBSA-2024016195

PATIENT
  Age: 16 Year
  Sex: Male
  Weight: 52.1 kg

DRUGS (2)
  1. FINTEPLA [Suspect]
     Active Substance: FENFLURAMINE
     Indication: Lennox-Gastaut syndrome
     Dosage: 6 MILLILITER, 2X/DAY (BID)
     Dates: start: 20231013
  2. FINTEPLA [Suspect]
     Active Substance: FENFLURAMINE
     Dates: start: 20231015

REACTIONS (2)
  - Mitral valve incompetence [Unknown]
  - Osteopenia [Not Recovered/Not Resolved]

NARRATIVE: CASE EVENT DATE: 20240401
